FAERS Safety Report 9487128 (Version 1)
Quarter: 2013Q3

REPORT INFORMATION
  Report Type: Spontaneous
  Country: AT (occurrence: AT)
  Receive Date: 20130829
  Receipt Date: 20130829
  Transmission Date: 20140515
  Serious: Yes (Other)
  Sender: FDA-Public Use
  Company Number: AT-ACTAVIS-2013-15230

PATIENT
  Age: 73 Year
  Sex: Male
  Weight: 87 kg

DRUGS (1)
  1. BICALUTAMIDE (UNKNOWN) [Suspect]
     Indication: PROSTATIC SPECIFIC ANTIGEN INCREASED
     Dosage: 150 MG, BID
     Route: 048
     Dates: start: 201301, end: 201301

REACTIONS (5)
  - Cardiomyopathy [Unknown]
  - Pain in extremity [Recovering/Resolving]
  - Headache [Recovering/Resolving]
  - Gynaecomastia [Unknown]
  - Breast discomfort [Unknown]
